FAERS Safety Report 9036843 (Version 1)
Quarter: 2013Q1

REPORT INFORMATION
  Report Type: Report from Study
  Country: US (occurrence: US)
  Receive Date: 20130129
  Receipt Date: 20130129
  Transmission Date: 20140127
  Serious: No
  Sender: FDA-Public Use
  Company Number: US-ABBOTT-12P-163-0895821-00

PATIENT
  Age: 26 Year
  Sex: Female

DRUGS (9)
  1. HUMIRA 40 MG/0.8 ML PEN [Suspect]
     Indication: CROHN^S DISEASE
     Dates: start: 2007
  2. PREDNISONE [Concomitant]
     Indication: CROHN^S DISEASE
     Dosage: DAILY
  3. LEVBID [Concomitant]
     Indication: CROHN^S DISEASE
  4. MULTIVITAMIN [Concomitant]
     Indication: VITAMIN SUPPLEMENTATION
     Dosage: DAILY
  5. CALCIUM ++ [Concomitant]
     Indication: MINERAL SUPPLEMENTATION
     Dosage: DAILY
  6. FOLIC ACID [Concomitant]
     Indication: FOLATE DEFICIENCY
     Dosage: DAILY
  7. VITAMIN D [Concomitant]
     Indication: VITAMIN D DEFICIENCY
     Dosage: DAILY
  8. TYLENOL [Concomitant]
     Indication: PAIN
  9. VICODIN [Concomitant]
     Indication: PAIN
     Dosage: 5/325MG

REACTIONS (2)
  - Weight increased [Not Recovered/Not Resolved]
  - Stress [Not Recovered/Not Resolved]
